FAERS Safety Report 5491902-6 (Version None)
Quarter: 2007Q4

REPORT INFORMATION
  Report Type: 
  Country: None (occurrence: None)
  Receive Date: 20071019
  Receipt Date: 20071019
  Transmission Date: 20080405
  Serious: Yes (Life-Threatening)
  Sender: FDA-Public Use
  Company Number: None

PATIENT
  Age: 49 Year
  Sex: Female
  Weight: 73.2 kg

DRUGS (9)
  1. IC-GREEN -INDOCYANINE GREEN- 25 MG AKORN, INC. [Suspect]
     Indication: CARDIAC IMAGING PROCEDURE
     Dosage: 2.5 MG ONCE IV
     Route: 042
     Dates: start: 20070920, end: 20070920
  2. IC-GREEN -INDOCYANINE GREEN- 25 MG AKORN, INC. [Suspect]
     Indication: CORONARY ARTERY BYPASS
     Dosage: 2.5 MG ONCE IV
     Route: 042
     Dates: start: 20070920, end: 20070920
  3. LIPITOR [Concomitant]
  4. ATACAND [Concomitant]
  5. PRILOSEC [Concomitant]
  6. FENTANOL [Concomitant]
  7. PROPAFOL [Concomitant]
  8. CYBOFLOURINE [Concomitant]
  9. HEPARIN [Concomitant]

REACTIONS (11)
  - ANAPHYLACTIC SHOCK [None]
  - ANASTOMOTIC LEAK [None]
  - BLOOD BICARBONATE DECREASED [None]
  - BLOOD CHLORIDE INCREASED [None]
  - BLOOD PH DECREASED [None]
  - BLOOD POTASSIUM DECREASED [None]
  - HAEMATOCRIT DECREASED [None]
  - HAEMOGLOBIN DECREASED [None]
  - LUNG INJURY [None]
  - OXYGEN SATURATION DECREASED [None]
  - TACHYCARDIA [None]
